FAERS Safety Report 10577711 (Version 1)
Quarter: 2014Q4

REPORT INFORMATION
  Report Type: Spontaneous
  Country: US (occurrence: US)
  Receive Date: 20141111
  Receipt Date: 20141111
  Transmission Date: 20150529
  Serious: Yes (Hospitalization, Other)
  Sender: FDA-Public Use
  Company Number: US-ABBVIE-14P-163-1303974-00

PATIENT
  Age: 62 Year
  Sex: Male

DRUGS (2)
  1. ANDROGEL [Suspect]
     Active Substance: TESTOSTERONE
     Indication: BLOOD TESTOSTERONE DECREASED
     Route: 062
     Dates: start: 201203, end: 201210
  2. TESTIM [Suspect]
     Active Substance: TESTOSTERONE
     Indication: BLOOD TESTOSTERONE DECREASED
     Route: 062
     Dates: start: 201210, end: 201211

REACTIONS (8)
  - Anxiety [Unknown]
  - Economic problem [Unknown]
  - Impaired work ability [Unknown]
  - Social problem [Unknown]
  - Cerebrovascular accident [Unknown]
  - Pain [Unknown]
  - Fear [Unknown]
  - Anhedonia [Unknown]

NARRATIVE: CASE EVENT DATE: 20121102
